FAERS Safety Report 22282021 (Version 2)
Quarter: 2023Q2

REPORT INFORMATION
  Report Type: Spontaneous
  Country: LB (occurrence: LB)
  Receive Date: 20230504
  Receipt Date: 20230621
  Transmission Date: 20230722
  Serious: Yes (Other)
  Sender: FDA-Public Use
  Company Number: LB-BEIGENE, LTD-BGN-2023-003626

PATIENT

DRUGS (1)
  1. BRUKINSA [Suspect]
     Active Substance: ZANUBRUTINIB
     Indication: Disease progression
     Dosage: 160 MILLIGRAM, BID
     Route: 048
     Dates: start: 202210, end: 20230322

REACTIONS (1)
  - Disease progression [Unknown]
